FAERS Safety Report 8326467-4 (Version None)
Quarter: 2012Q2

REPORT INFORMATION
  Report Type: 
  Country: None (occurrence: None)
  Receive Date: 20120501
  Receipt Date: 20090720
  Transmission Date: 20120825
  Serious: No
  Sender: FDA-Public Use
  Company Number: US-TEVA-2009008698

PATIENT
  Sex: Female
  Weight: 56.75 kg

DRUGS (9)
  1. GEODON [Concomitant]
     Dates: start: 19990101
  2. NUVIGIL [Suspect]
     Indication: SLEEP TERROR
     Dosage: 300 MILLIGRAM;
     Route: 048
     Dates: start: 20090712
  3. DILANTIN [Concomitant]
  4. SEROQUEL [Concomitant]
  5. NUVIGIL [Suspect]
     Indication: SOMNAMBULISM
  6. CLONIDINE [Concomitant]
  7. LAMICTAL [Concomitant]
  8. EFFEXOR XR [Concomitant]
  9. CLONAZEPAM [Concomitant]

REACTIONS (5)
  - PAIN [None]
  - OROPHARYNGEAL PAIN [None]
  - DRUG INEFFECTIVE FOR UNAPPROVED INDICATION [None]
  - BREAST SWELLING [None]
  - BREAST PAIN [None]
